FAERS Safety Report 8368229-8 (Version None)
Quarter: 2012Q2

REPORT INFORMATION
  Report Type: 
  Country: None (occurrence: None)
  Receive Date: 20120517
  Receipt Date: 20120510
  Transmission Date: 20120825
  Serious: Yes (Hospitalization, Other)
  Sender: FDA-Public Use
  Company Number: US-MERCK-1111USA03155

PATIENT
  Age: 79 Year
  Sex: Female

DRUGS (4)
  1. FOSAMAX [Suspect]
     Route: 048
     Dates: start: 19960601
  2. HORMONES (UNSPECIFIED) [Concomitant]
     Route: 065
     Dates: start: 19720101, end: 20091004
  3. FOSAMAX [Suspect]
     Indication: OSTEOPOROSIS
     Route: 048
     Dates: start: 19960601
  4. LANSOPRAZOLE [Concomitant]
     Route: 065
     Dates: start: 19960101

REACTIONS (7)
  - FEMUR FRACTURE [None]
  - SPINDLE CELL SARCOMA [None]
  - JAW DISORDER [None]
  - FRACTURE DELAYED UNION [None]
  - MYOCARDIAL INFARCTION [None]
  - DENTAL PROSTHESIS USER [None]
  - DEVICE MALFUNCTION [None]
